FAERS Safety Report 15107750 (Version 1)
Quarter: 2018Q3

REPORT INFORMATION
  Report Type: Spontaneous
  Country: US (occurrence: US)
  Receive Date: 20180704
  Receipt Date: 20180704
  Transmission Date: 20181010
  Serious: Yes (Hospitalization)
  Sender: FDA-Public Use
  Company Number: US-ASTRAZENECA-2018SE85568

PATIENT
  Sex: Male

DRUGS (2)
  1. BYDUREON [Suspect]
     Active Substance: EXENATIDE
     Route: 058
     Dates: end: 2017
  2. BYDUREON BCISE [Suspect]
     Active Substance: EXENATIDE
     Route: 058
     Dates: start: 2017

REACTIONS (5)
  - Memory impairment [Not Recovered/Not Resolved]
  - Drug dose omission [Unknown]
  - Ill-defined disorder [Unknown]
  - Injection site haemorrhage [Unknown]
  - Limbic encephalitis [Recovered/Resolved with Sequelae]

NARRATIVE: CASE EVENT DATE: 2017
